FAERS Safety Report 21668632 (Version 1)
Quarter: 2022Q4

REPORT INFORMATION
  Report Type: Spontaneous
  Country: US (occurrence: US)
  Receive Date: 20221201
  Receipt Date: 20221201
  Transmission Date: 20230112
  Serious: No
  Sender: FDA-Public Use
  Company Number: US-SA-SAC20221201000147

PATIENT
  Sex: Female

DRUGS (1)
  1. DUPIXENT [Suspect]
     Active Substance: DUPILUMAB
     Dosage: 300MG, FREQUENCY: OTHER
     Route: 058

REACTIONS (6)
  - Injection site pain [Unknown]
  - Injection site mass [Unknown]
  - Nasopharyngitis [Unknown]
  - Insomnia [Unknown]
  - Eye irritation [Unknown]
  - Eyelids pruritus [Unknown]
